FAERS Safety Report 7091331-8 (Version None)
Quarter: 2010Q4

REPORT INFORMATION
  Report Type: 
  Country: None (occurrence: None)
  Receive Date: 20101109
  Receipt Date: 20101104
  Transmission Date: 20110411
  Serious: Yes (Congenital Anomaly)
  Sender: FDA-Public Use
  Company Number: A0748188A

PATIENT
  Sex: Female

DRUGS (4)
  1. PAXIL [Suspect]
     Indication: DEPRESSION
     Dates: start: 19990101
  2. PAROXETINE HYDROCHLORIDE [Suspect]
     Indication: ANXIETY
     Dates: start: 19990101
  3. PAROXETINE HYDROCHLORIDE [Suspect]
  4. PRENATAL VITAMINS [Concomitant]

REACTIONS (3)
  - DRUG EXPOSURE DURING PREGNANCY [None]
  - TALIPES [None]
  - TENDON DISORDER [None]
